FAERS Safety Report 7902119-7 (Version None)
Quarter: 2011Q4

REPORT INFORMATION
  Report Type: 
  Country: None (occurrence: None)
  Receive Date: 20111108
  Receipt Date: 20111031
  Transmission Date: 20120403
  Serious: Yes (Other)
  Sender: FDA-Public Use
  Company Number: US-BAYER-2011-028591

PATIENT
  Age: 16 Year
  Sex: Female
  Weight: 63.492 kg

DRUGS (7)
  1. PROMETHAZINE [Concomitant]
  2. CLONIDINE [Concomitant]
  3. FAMOTIDINE [Concomitant]
  4. ACETAMINOPHEN W/ CODEINE [Concomitant]
  5. NEXIUM [Concomitant]
  6. YAZ [Suspect]
     Dosage: UNK
  7. ADDERALL 5 [Concomitant]

REACTIONS (10)
  - GALLBLADDER DISORDER [None]
  - EMOTIONAL DISTRESS [None]
  - ABDOMINAL PAIN UPPER [None]
  - CHOLELITHIASIS [None]
  - PSYCHOLOGICAL TRAUMA [None]
  - PAIN [None]
  - CHOLECYSTITIS [None]
  - INJURY [None]
  - FEAR [None]
  - ANXIETY [None]
